FAERS Safety Report 7531230-8 (Version None)
Quarter: 2011Q2

REPORT INFORMATION
  Report Type: 
  Country: None (occurrence: None)
  Receive Date: 20110531
  Receipt Date: 20110523
  Transmission Date: 20111010
  Serious: Yes (Other)
  Sender: FDA-Public Use
  Company Number: 2011SP023753

PATIENT
  Age: 30 Year
  Sex: Male
  Weight: 84 kg

DRUGS (6)
  1. TEMODAL [Suspect]
     Indication: BRAIN NEOPLASM MALIGNANT
     Dosage: PO ; 20 MG;QID;PO
     Route: 048
     Dates: start: 20100301
  2. TEMODAL [Suspect]
     Indication: BRAIN NEOPLASM MALIGNANT
     Dosage: PO ; 20 MG;QID;PO
     Route: 048
     Dates: start: 20110101
  3. NAUSEDRON [Concomitant]
  4. CLONAZEPAM [Concomitant]
  5. TEMODAL [Suspect]
  6. TEMODAL [Suspect]

REACTIONS (3)
  - OEDEMA PERIPHERAL [None]
  - SWELLING FACE [None]
  - VOMITING [None]
